FAERS Safety Report 10194247 (Version 2)
Quarter: 2014Q2

REPORT INFORMATION
  Report Type: Spontaneous
  Country: US (occurrence: US)
  Receive Date: 20140525
  Receipt Date: 20140525
  Transmission Date: 20141212
  Serious: Yes (Other)
  Sender: FDA-Public Use
  Company Number: US-BRISTOL-MYERS SQUIBB COMPANY-20629200

PATIENT
  Age: 71 Year
  Sex: Female
  Weight: 124.26 kg

DRUGS (7)
  1. BYETTA [Suspect]
     Indication: WEIGHT DECREASED
     Route: 058
     Dates: start: 20140410
  2. BYETTA [Suspect]
     Indication: TYPE 2 DIABETES MELLITUS
     Route: 058
     Dates: start: 20140410
  3. METFORMIN HCL [Suspect]
  4. NOVOLOG [Concomitant]
     Indication: BLOOD GLUCOSE
     Dosage: 1DF=10-25UNITS
  5. LANTUS [Concomitant]
     Indication: BLOOD GLUCOSE
     Dosage: 1DF=45UNITS
  6. ASPIRIN [Concomitant]
  7. INSULIN [Concomitant]

REACTIONS (3)
  - Hypersensitivity [Unknown]
  - Abdominal pain [Recovering/Resolving]
  - Nausea [Recovering/Resolving]
